FAERS Safety Report 7261945-0 (Version None)
Quarter: 2011Q1

REPORT INFORMATION
  Report Type: 
  Country: None (occurrence: None)
  Receive Date: 20110130
  Receipt Date: 20101201
  Transmission Date: 20110831
  Serious: No
  Sender: FDA-Public Use
  Company Number: US-ABBOTT-10P-163-0688869-00

PATIENT
  Age: 39 Year
  Sex: Male

DRUGS (6)
  1. ADVAIR [Concomitant]
     Indication: BRONCHITIS CHRONIC
  2. TRAZODONE HCL [Concomitant]
     Indication: INSOMNIA
  3. LISINOPRIL [Concomitant]
     Indication: BLOOD PRESSURE
  4. FOLIC ACID [Concomitant]
     Indication: VITAMIN SUPPLEMENTATION
  5. HYDROCHLOROTHIAZIDE [Concomitant]
     Indication: BLOOD PRESSURE
  6. HUMIRA [Suspect]
     Indication: CROHN'S DISEASE
     Dates: start: 20100701

REACTIONS (3)
  - VIRAL INFECTION [None]
  - RASH GENERALISED [None]
  - FUNGAL SKIN INFECTION [None]
